FAERS Safety Report 12747305 (Version 1)
Quarter: 2016Q3

REPORT INFORMATION
  Report Type: Spontaneous
  Country: US (occurrence: US)
  Receive Date: 20160915
  Receipt Date: 20160915
  Transmission Date: 20161109
  Serious: No
  Sender: FDA-Public Use
  Company Number: US-ASTELLAS-2016US003622

PATIENT
  Age: 60 Year
  Sex: Male

DRUGS (3)
  1. XTANDI [Suspect]
     Active Substance: ENZALUTAMIDE
     Indication: PRODUCT USED FOR UNKNOWN INDICATION
     Dosage: 160 MG, ONCE DAILY (40 MG X 4 CAPSULES)
     Route: 065
  2. XTANDI [Suspect]
     Active Substance: ENZALUTAMIDE
     Dosage: 80 MG, ONCE DAILY (2 DF, 40 MG X 2 CAPSULES)
     Route: 048
     Dates: start: 201502
  3. XTANDI [Suspect]
     Active Substance: ENZALUTAMIDE
     Route: 048

REACTIONS (2)
  - Drug ineffective [Unknown]
  - Adverse event [Not Recovered/Not Resolved]

NARRATIVE: CASE EVENT DATE: 20160107
